FAERS Safety Report 13988556 (Version 1)
Quarter: 2017Q3

REPORT INFORMATION
  Report Type: Spontaneous
  Country: CA (occurrence: CA)
  Receive Date: 20170919
  Receipt Date: 20170919
  Transmission Date: 20171128
  Serious: Yes (Hospitalization)
  Sender: FDA-Public Use
  Company Number: CA-ACTELION-A-NJ2017-159587

PATIENT
  Age: 71 Year
  Sex: Male

DRUGS (5)
  1. OPSUMIT [Suspect]
     Active Substance: MACITENTAN
     Indication: PRODUCT USED FOR UNKNOWN INDICATION
     Dosage: 10 MG, QD
     Route: 048
  2. LACTULOSE. [Concomitant]
     Active Substance: LACTULOSE
  3. URSODIOL. [Concomitant]
     Active Substance: URSODIOL
  4. METRONIDAZOLE. [Concomitant]
     Active Substance: METRONIDAZOLE
  5. TECTA [Concomitant]
     Active Substance: PANTOPRAZOLE MAGNESIUM

REACTIONS (5)
  - Terminal state [Unknown]
  - Ulcer [Unknown]
  - Abdominal distension [Unknown]
  - Haematochezia [Unknown]
  - Abdominal pain [Unknown]
